FAERS Safety Report 9707934 (Version 2)
Quarter: 2013Q4

REPORT INFORMATION
  Report Type: Spontaneous
  Country: US (occurrence: US)
  Receive Date: 20131125
  Receipt Date: 20131125
  Transmission Date: 20140711
  Serious: No
  Sender: FDA-Public Use
  Company Number: US-TEVA-368082USA

PATIENT
  Age: 34 Year
  Sex: Female
  Weight: 88.08 kg

DRUGS (6)
  1. PARAGARD 380A [Suspect]
     Indication: CONTRACEPTION
     Route: 015
     Dates: start: 20121024, end: 20121026
  2. DOXYCYCLINE [Concomitant]
     Indication: PROPHYLAXIS
     Dates: start: 20121026
  3. NORCO [Concomitant]
     Indication: UTERINE SPASM
     Dates: start: 20121026
  4. NORCO [Concomitant]
     Indication: PELVIC PAIN
  5. FLAGYL [Concomitant]
     Indication: PROPHYLAXIS
     Dates: start: 20121029
  6. TERAZOL [Concomitant]
     Indication: PROPHYLAXIS
     Dates: start: 20121029

REACTIONS (3)
  - Uterine spasm [Recovered/Resolved]
  - Pelvic pain [Recovered/Resolved]
  - Pyrexia [Unknown]
